FAERS Safety Report 14472302 (Version 1)
Quarter: 2018Q1

REPORT INFORMATION
  Report Type: Spontaneous
  Country: IT (occurrence: IT)
  Receive Date: 20180131
  Receipt Date: 20180131
  Transmission Date: 20180509
  Serious: Yes (Other)
  Sender: FDA-Public Use
  Company Number: IT-MYLANLABS-2018M1005862

PATIENT
  Sex: Male

DRUGS (3)
  1. LUTEINIZING HORMONE-RELEASING HORMONE [Concomitant]
     Active Substance: GONADORELIN
     Indication: PROSTATE CANCER METASTATIC
     Dosage: DOSAGE FORM: UNSPECIFIED
     Route: 065
  2. ABIRATERONE ACETATE. [Suspect]
     Active Substance: ABIRATERONE ACETATE
     Indication: PROSTATE CANCER METASTATIC
     Route: 048
  3. PREDNISONE. [Suspect]
     Active Substance: PREDNISONE
     Indication: PROSTATE CANCER METASTATIC
     Dosage: DOSAGE FORM: UNSPECIFIED, IN 28 DAY CYCLE
     Route: 065

REACTIONS (4)
  - Interstitial lung disease [Unknown]
  - Peripheral ischaemia [Unknown]
  - Cerebral ischaemia [Unknown]
  - Pulmonary embolism [Unknown]
